FAERS Safety Report 9980926 (Version 1)
Quarter: 2014Q1

REPORT INFORMATION
  Report Type: Spontaneous
  Country: ZA (occurrence: ZA)
  Receive Date: 20140307
  Receipt Date: 20140307
  Transmission Date: 20141002
  Serious: Yes (Other)
  Sender: FDA-Public Use
  Company Number: ZA-JNJFOC-20140218506

PATIENT
  Age: 46 Year
  Sex: Male

DRUGS (3)
  1. CONCERTA [Suspect]
     Indication: DEPRESSION
     Route: 048
  2. CONCERTA [Suspect]
     Indication: DEPRESSION
     Route: 048
  3. RITALIN [Suspect]
     Indication: DEPRESSION
     Route: 065

REACTIONS (6)
  - Dependence [Unknown]
  - Drug ineffective [Unknown]
  - Suicidal ideation [Unknown]
  - Drug prescribing error [Unknown]
  - Constipation [Unknown]
  - Off label use [Unknown]
